FAERS Safety Report 9345570 (Version 1)
Quarter: 2013Q2

REPORT INFORMATION
  Report Type: Spontaneous
  Country: SE (occurrence: SE)
  Receive Date: 20130613
  Receipt Date: 20130613
  Transmission Date: 20140414
  Serious: Yes (Hospitalization)
  Sender: FDA-Public Use
  Company Number: SE-MERCK-1306SWE002502

PATIENT
  Age: 72 Year
  Sex: Male

DRUGS (8)
  1. JANUMET [Suspect]
     Indication: TYPE 2 DIABETES MELLITUS
     Dosage: 50MG/850MG, BID
     Route: 048
     Dates: start: 20130206, end: 20130318
  2. INSULIN HUMAN [Concomitant]
  3. SIMVASTATIN ARROW [Concomitant]
  4. OMEPRAZOL ACTAVIS [Concomitant]
  5. WARAN [Concomitant]
  6. FURIX [Concomitant]
  7. SPIRONOLAKTON NYCOMED [Concomitant]
  8. HUMALOG [Concomitant]

REACTIONS (4)
  - Atrioventricular block [Recovered/Resolved]
  - Dyspnoea [Recovered/Resolved]
  - Fatigue [Recovered/Resolved]
  - Lactic acidosis [Recovered/Resolved]
